FAERS Safety Report 9323205 (Version 2)
Quarter: 2014Q2

REPORT INFORMATION
  Report Type: Spontaneous
  Country: IT (occurrence: IT)
  Receive Date: 20130603
  Receipt Date: 20140414
  Transmission Date: 20141212
  Serious: Yes (Other)
  Sender: FDA-Public Use
  Company Number: IT-RANBAXY-2013R1-69476

PATIENT
  Age: 76 Year
  Sex: Female

DRUGS (1)
  1. CIPROFLOXACIN [Suspect]
     Indication: COUGH
     Dosage: 250 MG, DAILY
     Route: 048
     Dates: start: 20130314, end: 20130316

REACTIONS (2)
  - Oedema [Recovered/Resolved]
  - Throat tightness [Recovered/Resolved]
